FAERS Safety Report 16031224 (Version 1)
Quarter: 2019Q1

REPORT INFORMATION
  Report Type: Spontaneous
  Country: US (occurrence: US)
  Receive Date: 20190304
  Receipt Date: 20190304
  Transmission Date: 20190418
  Serious: No
  Sender: FDA-Public Use
  Company Number: US-JNJFOC-20190228333

PATIENT
  Age: 69 Year
  Sex: Female
  Weight: 74.39 kg

DRUGS (2)
  1. AMLODIPINE [Concomitant]
     Active Substance: AMLODIPINE BESYLATE
     Indication: HYPERTENSION
     Route: 048
     Dates: start: 2014
  2. TREMFYA [Suspect]
     Active Substance: GUSELKUMAB
     Indication: PSORIASIS
     Dosage: BI-WEEKLY FIRST MONTH AND MONTHLY AFTER
     Route: 058
     Dates: start: 20190201

REACTIONS (4)
  - Product use issue [Unknown]
  - Psoriasis [Not Recovered/Not Resolved]
  - Product dose omission [Not Recovered/Not Resolved]
  - Off label use [Unknown]

NARRATIVE: CASE EVENT DATE: 20190201
